FAERS Safety Report 7071788-9 (Version None)
Quarter: 2010Q4

REPORT INFORMATION
  Report Type: 
  Country: None (occurrence: None)
  Receive Date: 20101029
  Receipt Date: 20091022
  Transmission Date: 20110411
  Serious: No
  Sender: FDA-Public Use
  Company Number: A0812967A

PATIENT
  Age: 54 Year
  Sex: Male

DRUGS (8)
  1. ADVAIR DISKUS 100/50 [Suspect]
     Indication: CHRONIC OBSTRUCTIVE PULMONARY DISEASE
     Dosage: 2PUFF TWICE PER DAY
     Route: 055
  2. COMBIVENT [Concomitant]
  3. LANTUS [Concomitant]
  4. NOVOLOG [Concomitant]
  5. PRAVASTATIN [Concomitant]
  6. ALLOPURINOL [Concomitant]
  7. METFORMIN [Concomitant]
  8. BENAZAPRIL [Concomitant]

REACTIONS (2)
  - COUGH [None]
  - MALAISE [None]
